FAERS Safety Report 5524675-9 (Version None)
Quarter: 2007Q4

REPORT INFORMATION
  Report Type: 
  Country: None (occurrence: None)
  Receive Date: 20071123
  Receipt Date: 20071115
  Transmission Date: 20080405
  Serious: Yes (Hospitalization)
  Sender: FDA-Public Use
  Company Number: US-ROCHE-531735

PATIENT
  Age: 72 Year
  Sex: Female

DRUGS (10)
  1. BONIVA [Suspect]
     Indication: OSTEOPENIA
     Route: 065
     Dates: start: 20050101
  2. CHOLESTYRAMINE [Concomitant]
  3. OMEPRAZOLE [Concomitant]
     Dates: start: 19920101
  4. LEVOTHYROXINE SODIUM [Concomitant]
  5. TOPROL-XL [Concomitant]
  6. XANAX [Concomitant]
  7. AMBIEN [Concomitant]
  8. PREMARIN [Concomitant]
     Dosage: REPORTED AS 'PREMARIN VAGINAL CREAM'
     Route: 067
  9. FLONASE [Concomitant]
     Dosage: REPORTED AS 'FLONASE NASAL SPRAY'
     Route: 045
  10. MULTI-VITAMINS [Concomitant]
     Dosage: REPORTED AS 'VITAMINS'

REACTIONS (3)
  - DYSPHAGIA [None]
  - FALL [None]
  - HIP FRACTURE [None]
